FAERS Safety Report 7366590-4 (Version None)
Quarter: 2011Q1

REPORT INFORMATION
  Report Type: 
  Country: None (occurrence: None)
  Receive Date: 20110311
  Receipt Date: 20110225
  Transmission Date: 20110831
  Serious: Yes (Hospitalization, Other)
  Sender: FDA-Public Use
  Company Number: 2011AP000360

PATIENT
  Age: 36 Year
  Sex: Female

DRUGS (7)
  1. CARBAMAZEPINE [Concomitant]
  2. PHENYTOIN [Suspect]
     Indication: EPILEPSY
     Dosage: 150 MG;
  3. GABAPENTIN [Concomitant]
  4. TOPIRAMATE(TOPIRAMATE) DOSE, FORM, ROUTE AND FREQUENCY 250 MG;UNKNOWN; [Suspect]
     Indication: EPILEPSY
     Dosage: 250 MG;QD
  5. LACOSAMIDE [Suspect]
     Indication: EPILEPSY
     Dosage: 100 MG;QD
  6. OXCARBAZEPINE [Suspect]
     Indication: EPILEPSY
     Dosage: 1200 MG; QD
  7. LAMOTRIGINE [Concomitant]

REACTIONS (4)
  - CONVULSION [None]
  - BALANCE DISORDER [None]
  - DIPLOPIA [None]
  - DRUG INTERACTION [None]
